FAERS Safety Report 5229307-5 (Version None)
Quarter: 2007Q1

REPORT INFORMATION
  Report Type: 
  Country: None (occurrence: None)
  Receive Date: 20061201
  Receipt Date: 20060901
  Transmission Date: 20070707
  Serious: No
  Sender: FDA-Public Use
  Company Number: US200609000731

PATIENT
  Sex: Female

DRUGS (10)
  1. CYMBALTA [Suspect]
     Indication: DEPRESSION
     Dosage: 60 MG DAILY (1/D) ORAL
     Route: 048
  2. VICODIN ES (HYDROCHLORIDE BITARTRATE, PARACETAMOL) [Concomitant]
  3. NEURONTIN [Concomitant]
  4. PIROXICAM [Concomitant]
  5. NORTRIPTYLINE HCL [Concomitant]
  6. MULTIVITAMIN ^SOLVAY^ (VITAMINS NOS) [Concomitant]
  7. PERI-COLACE [Concomitant]
  8. LISINOPRIL [Concomitant]
  9. HYDROCHLOROTHIAZIDE [Concomitant]
  10. PAMELOR /USA/ (NORTRIPTYLINE HYDROCHLORIDE) [Concomitant]

REACTIONS (7)
  - AGGRESSION [None]
  - AGITATION [None]
  - ANGER [None]
  - ANXIETY [None]
  - HOSTILITY [None]
  - IMPULSIVE BEHAVIOUR [None]
  - IRRITABILITY [None]
